FAERS Safety Report 12876241 (Version 1)
Quarter: 2016Q4

REPORT INFORMATION
  Report Type: Spontaneous
  Country: US (occurrence: US)
  Receive Date: 20161021
  Receipt Date: 20161021
  Transmission Date: 20170207
  Serious: No
  Sender: FDA-Public Use
  Company Number: None

PATIENT
  Age: 63 Year
  Weight: 52.2 kg

DRUGS (7)
  1. PLAQUENIL [Concomitant]
     Active Substance: HYDROXYCHLOROQUINE SULFATE
  2. EVOXAC [Concomitant]
     Active Substance: CEVIMELINE HYDROCHLORIDE
  3. XIIDRA [Suspect]
     Active Substance: LIFITEGRAST
     Indication: DRY EYE
     Route: 047
     Dates: start: 20161019, end: 20161020
  4. FOLIC ACID. [Concomitant]
     Active Substance: FOLIC ACID
  5. SINGULAIR [Concomitant]
     Active Substance: MONTELUKAST SODIUM
  6. DOXEPIN [Concomitant]
     Active Substance: DOXEPIN
  7. SUDAFED [Concomitant]
     Active Substance: PSEUDOEPHEDRINE HYDROCHLORIDE

REACTIONS (2)
  - Tongue discomfort [None]
  - Dysgeusia [None]

NARRATIVE: CASE EVENT DATE: 20161020
